FAERS Safety Report 12672431 (Version 1)
Quarter: 2016Q3

REPORT INFORMATION
  Report Type: Spontaneous
  Country: US (occurrence: US)
  Receive Date: 20160822
  Receipt Date: 20160822
  Transmission Date: 20161109
  Serious: No
  Sender: FDA-Public Use
  Company Number: US-JNJFOC-20160702707

PATIENT
  Age: 55 Year
  Sex: Female
  Weight: 49.9 kg

DRUGS (4)
  1. WOMENS ROGAINE [Suspect]
     Active Substance: MINOXIDIL
     Indication: ALOPECIA
     Dosage: 1 PLUS ML (1ML OR MAYBE A BIT MORE)
     Route: 061
     Dates: start: 2016, end: 20160630
  2. FINASTERIDE. [Interacting]
     Active Substance: FINASTERIDE
     Indication: ALOPECIA
     Dosage: DAILY
     Route: 065
     Dates: start: 2016
  3. WOMENS ROGAINE [Suspect]
     Active Substance: MINOXIDIL
     Route: 061
  4. PROGESTERONE. [Concomitant]
     Active Substance: PROGESTERONE
     Indication: ALOPECIA
     Dosage: DAILY
     Route: 065

REACTIONS (3)
  - Drug interaction [Not Recovered/Not Resolved]
  - Incorrect dose administered [Not Recovered/Not Resolved]
  - Pruritus [Not Recovered/Not Resolved]

NARRATIVE: CASE EVENT DATE: 2016
